FAERS Safety Report 6162206-3 (Version None)
Quarter: 2009Q2

REPORT INFORMATION
  Report Type: 
  Country: None (occurrence: None)
  Receive Date: 20090417
  Receipt Date: 20090417
  Transmission Date: 20091009
  Serious: Yes (Hospitalization)
  Sender: FDA-Public Use
  Company Number: None

PATIENT
  Age: 60 Year
  Sex: Female
  Weight: 48.5349 kg

DRUGS (12)
  1. LISINOPRIL [Suspect]
     Indication: HYPERTENSION
     Dosage: 5 MG DAILY PO AT LEAST 1 YEAR
     Route: 048
  2. VALSARTAN [Suspect]
     Indication: HYPERTENSION
     Dosage: 320 MG DAILY PO
     Route: 048
  3. LORATADINE [Concomitant]
  4. ROSUVASTATIN [Concomitant]
  5. FLUTICASONE ORAL INHALER [Concomitant]
  6. ALBUTEROL [Concomitant]
  7. DIPHENHYDRAMINE HCL [Concomitant]
  8. FLUTICASONE [Concomitant]
  9. POTASSIUM CHLORIDE [Concomitant]
  10. IPRATROPIUM BROMIDE [Concomitant]
  11. FLUOXETINE [Concomitant]
  12. TRIAMTERENE AND HYDROCHLOROTHIAZIDE [Concomitant]

REACTIONS (1)
  - ANGIOEDEMA [None]
